FAERS Safety Report 8487577 (Version 3)
Quarter: 2013Q3

REPORT INFORMATION
  Report Type: Spontaneous
  Country: JP (occurrence: JP)
  Receive Date: 20120402
  Receipt Date: 20130821
  Transmission Date: 20140515
  Serious: Yes (Other)
  Sender: FDA-Public Use
  Company Number: JP-JNJFOC-20120314383

PATIENT
  Sex: 0

DRUGS (1)
  1. TRAMACET [Suspect]
     Indication: PAIN
     Route: 048

REACTIONS (1)
  - Dyskinesia [Unknown]
